FAERS Safety Report 12550620 (Version 1)
Quarter: 2016Q3

REPORT INFORMATION
  Report Type: Spontaneous
  Country: CH (occurrence: CH)
  Receive Date: 20160712
  Receipt Date: 20160712
  Transmission Date: 20161109
  Serious: Yes (Other)
  Sender: FDA-Public Use
  Company Number: CH-ALLERGAN-1662543US

PATIENT
  Age: 37 Year
  Sex: Female

DRUGS (13)
  1. BOTOX [Suspect]
     Active Substance: ONABOTULINUMTOXINA
     Dosage: 0.1 ML, SINGLE
     Route: 030
     Dates: start: 20150929, end: 20150929
  2. BOTOX [Suspect]
     Active Substance: ONABOTULINUMTOXINA
     Dosage: 0.2 ML, SINGLE
     Route: 030
     Dates: start: 20150929, end: 20150929
  3. BOTOX [Suspect]
     Active Substance: ONABOTULINUMTOXINA
     Dosage: 0.1 ML, SINGLE
     Route: 030
     Dates: start: 20150929, end: 20150929
  4. BOTOX [Suspect]
     Active Substance: ONABOTULINUMTOXINA
     Dosage: 0.1 ML, SINGLE
     Route: 030
     Dates: start: 20150929, end: 20150929
  5. BOTOX [Suspect]
     Active Substance: ONABOTULINUMTOXINA
     Dosage: 0.5 ML, SINGLE
     Route: 030
     Dates: start: 20150929, end: 20150929
  6. BOTOX [Suspect]
     Active Substance: ONABOTULINUMTOXINA
     Dosage: 0.1 ML, SINGLE
     Route: 030
     Dates: start: 20150929, end: 20150929
  7. BOTOX [Suspect]
     Active Substance: ONABOTULINUMTOXINA
     Dosage: 0.2 ML, SINGLE
     Route: 030
     Dates: start: 20150929, end: 20150929
  8. BOTOX [Suspect]
     Active Substance: ONABOTULINUMTOXINA
     Indication: CERVICOGENIC HEADACHE
     Dosage: 0.1 ML, SINGLE
     Route: 030
     Dates: start: 20150929, end: 20150929
  9. BOTOX [Suspect]
     Active Substance: ONABOTULINUMTOXINA
     Dosage: 0.1 ML, SINGLE
     Route: 030
     Dates: start: 20150929, end: 20150929
  10. BOTOX [Suspect]
     Active Substance: ONABOTULINUMTOXINA
     Dosage: 0.1 ML, SINGLE
     Route: 030
     Dates: start: 20150929, end: 20150929
  11. BOTOX [Suspect]
     Active Substance: ONABOTULINUMTOXINA
     Dosage: 0.5 ML, SINGLE
     Route: 030
     Dates: start: 20150929, end: 20150929
  12. BOTOX [Suspect]
     Active Substance: ONABOTULINUMTOXINA
     Dosage: 0.2 ML, SINGLE
     Route: 030
     Dates: start: 20150929, end: 20150929
  13. BOTOX [Suspect]
     Active Substance: ONABOTULINUMTOXINA
     Dosage: 0.2 ML, SINGLE
     Route: 030
     Dates: start: 20150929, end: 20150929

REACTIONS (6)
  - Pain of skin [Recovered/Resolved]
  - Sleep disorder [Recovered/Resolved]
  - Myalgia [Recovering/Resolving]
  - Off label use [Unknown]
  - Muscular weakness [Unknown]
  - Dysphagia [Recovered/Resolved]

NARRATIVE: CASE EVENT DATE: 20151002
